FAERS Safety Report 9298563 (Version 4)
Quarter: 2013Q3

REPORT INFORMATION
  Report Type: Report from Study
  Country: US (occurrence: US)
  Receive Date: 20130520
  Receipt Date: 20130827
  Transmission Date: 20140515
  Serious: Yes (Hospitalization, Other)
  Sender: FDA-Public Use
  Company Number: US-ROCHE-1224548

PATIENT
  Age: 54 Year
  Sex: Female
  Weight: 68.1 kg

DRUGS (6)
  1. TRASTUZUMAB [Suspect]
     Indication: BREAST CANCER
     Route: 042
     Dates: start: 20130101
  2. TAXOTERE [Suspect]
     Indication: BREAST CANCER
     Route: 042
     Dates: start: 20130113, end: 20130422
  3. CARBOPLATIN [Suspect]
     Indication: BREAST CANCER
     Route: 042
     Dates: start: 20130101, end: 20130501
  4. CARBOPLATIN [Suspect]
     Route: 042
     Dates: start: 20130113, end: 20130422
  5. DOCETAXEL [Concomitant]
     Indication: BREAST CANCER
     Route: 042
     Dates: start: 20130101, end: 20130501
  6. NEULASTA [Concomitant]
     Indication: NEUTROPENIA
     Dosage: DRUG REPORTRD AS NEULESTA
     Route: 058
     Dates: start: 20130108

REACTIONS (13)
  - Mastectomy [Recovering/Resolving]
  - Blood pressure fluctuation [Recovering/Resolving]
  - Renal impairment [Not Recovered/Not Resolved]
  - Blood disorder [Recovering/Resolving]
  - Asthenia [Recovering/Resolving]
  - Dyspnoea [Recovering/Resolving]
  - Urinary tract infection [Recovering/Resolving]
  - Diarrhoea [Recovering/Resolving]
  - Arthralgia [Not Recovered/Not Resolved]
  - Chills [Not Recovered/Not Resolved]
  - Anaemia [Unknown]
  - Neuropathy peripheral [Not Recovered/Not Resolved]
  - Hypotension [Recovered/Resolved]
